FAERS Safety Report 19197611 (Version 2)
Quarter: 2021Q3

REPORT INFORMATION
  Report Type: Spontaneous
  Country: JP (occurrence: JP)
  Receive Date: 20210429
  Receipt Date: 20210810
  Transmission Date: 20211014
  Serious: Yes (Other)
  Sender: FDA-Public Use
  Company Number: JP-SYNEX-T202101886

PATIENT
  Age: 4 Month
  Sex: Male
  Weight: 5 kg

DRUGS (8)
  1. EPOPROSTENOL. [Suspect]
     Active Substance: EPOPROSTENOL
     Indication: PULMONARY HYPERTENSION
     Dosage: 2 NG/KG/MIN
     Route: 065
     Dates: start: 20180523, end: 2018
  2. MACITENTAN [Concomitant]
     Active Substance: MACITENTAN
     Indication: PULMONARY HYPERTENSION
     Dosage: 1 MILLIGRAM, BID
     Route: 065
     Dates: start: 20180523
  3. SILDENAFIL. [Concomitant]
     Active Substance: SILDENAFIL
     Indication: PULMONARY HYPERTENSION
     Dosage: 5 MILLIGRAM, QID
     Route: 065
     Dates: start: 20180524
  4. INOFLO [Suspect]
     Active Substance: NITRIC OXIDE
     Indication: PULMONARY HYPERTENSION
     Dosage: 20 PPM (INHALATION)
     Route: 055
     Dates: start: 20180520, end: 2018
  5. INOFLO [Suspect]
     Active Substance: NITRIC OXIDE
     Dosage: DOSE DECREASED, (INHALATION)
     Route: 055
     Dates: start: 20180621, end: 20180622
  6. SELEXIPAG [Concomitant]
     Active Substance: SELEXIPAG
     Indication: PULMONARY HYPERTENSION
     Dosage: 0.4 GRAM, BID
     Route: 065
     Dates: start: 20180621
  7. EPOPROSTENOL. [Suspect]
     Active Substance: EPOPROSTENOL
     Dosage: 50 NG/KG/MIN
     Route: 065
     Dates: start: 20180604, end: 201806
  8. EPOPROSTENOL. [Suspect]
     Active Substance: EPOPROSTENOL
     Dosage: DOSE REDUCED
     Route: 065
     Dates: start: 20180621, end: 20180927

REACTIONS (4)
  - Pleural effusion [Recovered/Resolved]
  - Pulmonary congestion [Recovered/Resolved]
  - Product use in unapproved indication [Recovered/Resolved]
  - Product use issue [Recovered/Resolved]

NARRATIVE: CASE EVENT DATE: 20180520
